FAERS Safety Report 23516318 (Version 1)
Quarter: 2024Q1

REPORT INFORMATION
  Report Type: Report from Study
  Country: US (occurrence: US)
  Receive Date: 20240213
  Receipt Date: 20240213
  Transmission Date: 20240410
  Serious: Yes (Other)
  Sender: FDA-Public Use
  Company Number: US-ABBVIE-5628455

PATIENT
  Sex: Male

DRUGS (1)
  1. HUMIRA [Suspect]
     Active Substance: ADALIMUMAB
     Indication: Product used for unknown indication
     Route: 058
     Dates: start: 20200207

REACTIONS (3)
  - Limb injury [Recovering/Resolving]
  - Limb injury [Recovering/Resolving]
  - Graft complication [Recovering/Resolving]

NARRATIVE: CASE EVENT DATE: 20210101
